FAERS Safety Report 5201691-8 (Version None)
Quarter: 2007Q1

REPORT INFORMATION
  Report Type: 
  Country: None (occurrence: None)
  Receive Date: 20070104
  Receipt Date: 20061218
  Transmission Date: 20070707
  Serious: Yes (Hospitalization, Other)
  Sender: FDA-Public Use
  Company Number: IMP_2596_2006

PATIENT
  Age: 60 Year
  Sex: Female

DRUGS (3)
  1. FENOFIBRATE [Suspect]
     Indication: HYPERTRIGLYCERIDAEMIA
     Dosage: 250 MG Q DAY
     Dates: start: 20031201, end: 20031214
  2. RALOXIFENE HCL [Suspect]
     Indication: OSTEOPOROSIS
     Dosage: 60 MG Q DAY
     Dates: start: 20000101, end: 20031214
  3. RALOXIFENE HCL [Suspect]
     Indication: PROPHYLAXIS
     Dosage: 60 MG Q DAY
     Dates: start: 20000101, end: 20031214

REACTIONS (11)
  - CHOLELITHIASIS [None]
  - CHOLESTASIS [None]
  - CHROMATURIA [None]
  - HEPATIC NECROSIS [None]
  - HEPATOCELLULAR DAMAGE [None]
  - JAUNDICE [None]
  - LABORATORY TEST ABNORMAL [None]
  - LYMPHOCYTE PERCENTAGE DECREASED [None]
  - PRURIGO [None]
  - RASH MORBILLIFORM [None]
  - WHITE BLOOD CELL COUNT DECREASED [None]
